FAERS Safety Report 11237268 (Version 3)
Quarter: 2019Q4

REPORT INFORMATION
  Report Type: Spontaneous
  Country: GB (occurrence: GB)
  Receive Date: 20150703
  Receipt Date: 20191031
  Transmission Date: 20200122
  Serious: Yes (Other)
  Sender: FDA-Public Use
  Company Number: GB-ACCORD-031735

PATIENT
  Age: 2 Month

DRUGS (4)
  1. CLOZARIL [Suspect]
     Active Substance: CLOZAPINE
     Indication: SCHIZOPHRENIA
     Dosage: INITIALLY RECEIVED FROM 08-MAY-2014.?MATERNAL DOSE
     Route: 064
     Dates: start: 20140601
  2. HYOSCINE/HYOSCINE BORATE/HYOSCINE BUTYLBROMIDE/HYOSCINE HYDROBROMIDE/HYOSCINE METHOBROMIDE/HYOSCINE [Concomitant]
     Dosage: MATERNAL DOSE
     Route: 064
  3. DIAZEPAM. [Concomitant]
     Active Substance: DIAZEPAM
     Dosage: MATERNAL DOSE
     Route: 064
  4. SERTRALINE [Suspect]
     Active Substance: SERTRALINE HYDROCHLORIDE
     Indication: DEPRESSION
     Dosage: MOTHER STARTED ORAL SERTRALINE AT 100 MG QD FROM MAR-2014; RECEIVED OVERDOSE ON 23-NOV-2014.
     Route: 064

REACTIONS (2)
  - Premature baby [Unknown]
  - Foetal exposure during pregnancy [Unknown]

NARRATIVE: CASE EVENT DATE: 20150421
